FAERS Safety Report 13777550 (Version 3)
Quarter: 2017Q4

REPORT INFORMATION
  Report Type: Spontaneous
  Country: US (occurrence: US)
  Receive Date: 20170721
  Receipt Date: 20171213
  Transmission Date: 20180320
  Serious: Yes (Hospitalization, Other)
  Sender: FDA-Public Use
  Company Number: US-TEVA-787885ACC

PATIENT
  Age: 56 Year
  Sex: Male

DRUGS (11)
  1. AMLODIPINE [Concomitant]
     Active Substance: AMLODIPINE BESYLATE
  2. SYNRIBO [Suspect]
     Active Substance: OMACETAXINE MEPESUCCINATE
     Dosage: DOSAGE : 2.5 MG/71 ML
     Dates: start: 20170628
  3. LOSARTAN POTTASSIUM [Concomitant]
  4. PROTONIX [Concomitant]
     Active Substance: PANTOPRAZOLE SODIUM
  5. FOLIC ACID. [Concomitant]
     Active Substance: FOLIC ACID
  6. ALLOPURINOL. [Concomitant]
     Active Substance: ALLOPURINOL
  7. SENNA [Concomitant]
     Active Substance: SENNA LEAF\SENNOSIDES\SENNOSIDES A AND B
  8. ZOFRAN [Concomitant]
     Active Substance: ONDANSETRON HYDROCHLORIDE
  9. OXYCODONE [Concomitant]
     Active Substance: OXYCODONE
  10. CITALOPRAM [Concomitant]
     Active Substance: CITALOPRAM HYDROBROMIDE
  11. CARAFATE [Concomitant]
     Active Substance: SUCRALFATE

REACTIONS (7)
  - Intentional dose omission [Unknown]
  - Rash [Unknown]
  - Pancytopenia [Recovered/Resolved]
  - Dysphagia [Recovered/Resolved]
  - Fatigue [Unknown]
  - Alopecia [Unknown]
  - Ageusia [Unknown]

NARRATIVE: CASE EVENT DATE: 2017
